FAERS Safety Report 8087405-5 (Version None)
Quarter: 2012Q1

REPORT INFORMATION
  Report Type: 
  Country: None (occurrence: None)
  Receive Date: 20120128
  Receipt Date: 20110516
  Transmission Date: 20120608
  Serious: No
  Sender: FDA-Public Use
  Company Number: US-ABBOTT-11P-163-0726110-00

PATIENT
  Age: 68 Year
  Sex: Female

DRUGS (8)
  1. ASPIRIN [Concomitant]
     Indication: HYPERTENSION
  2. TRICOR [Concomitant]
     Indication: BLOOD CHOLESTEROL INCREASED
  3. ASPIRIN [Concomitant]
     Indication: BLOOD CHOLESTEROL
  4. AMLODIPINE [Concomitant]
     Indication: BLOOD PRESSURE
  5. VITAMIN B-12 [Concomitant]
     Indication: VITAMIN SUPPLEMENTATION
     Dosage: ONCE MONTHLY
  6. LISINOPRIL [Concomitant]
     Indication: HYPERTENSION
  7. FOLIC ACID [Concomitant]
     Indication: CROHN'S DISEASE
  8. HUMIRA [Suspect]
     Indication: CROHN'S DISEASE
     Dates: start: 20110201, end: 20110430

REACTIONS (1)
  - DRUG INEFFECTIVE [None]
